FAERS Safety Report 8860971 (Version 1)
Quarter: 2012Q4

REPORT INFORMATION
  Report Type: 
  Country: US (occurrence: US)
  Receive Date: 20121025
  Receipt Date: 20121025
  Transmission Date: 20130627
  Serious: No
  Sender: FDA-Public Use
  Company Number: US-B.I. PHARMACEUTICALS,INC./RIDGEFIELD-2012-BP-25641BP

PATIENT
  Age: 76 Year
  Sex: Male
  Weight: 113 kg

DRUGS (5)
  1. SPIRIVA [Suspect]
     Indication: DYSPNOEA
     Dosage: 18 mcg
     Route: 055
     Dates: start: 20120911
  2. AMLODIPINE [Concomitant]
     Indication: BLOOD GLUCOSE ABNORMAL
     Route: 048
     Dates: start: 2005
  3. METFORMIN [Concomitant]
     Indication: BLOOD GLUCOSE ABNORMAL
     Dosage: 2000 mg
     Route: 048
     Dates: start: 201209
  4. METFORMIN [Concomitant]
     Dosage: 2500 mg
     Route: 048
     Dates: start: 2005, end: 201209
  5. PRANDIN TABS [Concomitant]
     Indication: BLOOD GLUCOSE ABNORMAL
     Route: 048
     Dates: start: 20120925

REACTIONS (1)
  - Tinnitus [Not Recovered/Not Resolved]
